FAERS Safety Report 17857103 (Version 1)
Quarter: 2020Q2

REPORT INFORMATION
  Report Type: Spontaneous
  Country: US (occurrence: US)
  Receive Date: 20200603
  Receipt Date: 20200603
  Transmission Date: 20200714
  Serious: Yes (Other)
  Sender: FDA-Public Use
  Company Number: US-GILEAD-2020-0468777

PATIENT
  Age: 60 Year
  Sex: Male
  Weight: 103 kg

DRUGS (36)
  1. ALBUTEROL [SALBUTAMOL] [Concomitant]
     Active Substance: ALBUTEROL
  2. CHLOROTHIAZIDE. [Concomitant]
     Active Substance: CHLOROTHIAZIDE
  3. FUROSEMIDE. [Concomitant]
     Active Substance: FUROSEMIDE
  4. GABAPENTIN. [Concomitant]
     Active Substance: GABAPENTIN
  5. QUETIAPINE. [Concomitant]
     Active Substance: QUETIAPINE
  6. HEPARIN [Concomitant]
     Active Substance: HEPARIN SODIUM
  7. INSULIN LISPRO [Concomitant]
     Active Substance: INSULIN LISPRO
  8. METHYLPREDNISOLONE. [Concomitant]
     Active Substance: METHYLPREDNISOLONE
  9. METOLAZONE. [Concomitant]
     Active Substance: METOLAZONE
  10. REMDESIVIR. [Suspect]
     Active Substance: REMDESIVIR
     Indication: COVID-19
     Dosage: 200 MG, ONCE
     Route: 042
     Dates: start: 20200508, end: 20200508
  11. REMDESIVIR. [Suspect]
     Active Substance: REMDESIVIR
     Dosage: 100 MG, QD
     Route: 042
     Dates: start: 20200509, end: 20200512
  12. CAFFEINE CITRATE. [Concomitant]
     Active Substance: CAFFEINE CITRATE
  13. ENOXAPARIN [Concomitant]
     Active Substance: ENOXAPARIN
  14. LACTULOSE. [Concomitant]
     Active Substance: LACTULOSE
  15. MAGNESIUM SULFATE. [Concomitant]
     Active Substance: MAGNESIUM SULFATE
  16. EPOPROSTENOL. [Concomitant]
     Active Substance: EPOPROSTENOL
  17. MIDAZOLAM. [Concomitant]
     Active Substance: MIDAZOLAM
  18. OXYCODONE [Concomitant]
     Active Substance: OXYCODONE
  19. PIPERACILLIN/TAZOBACTAM [Concomitant]
     Active Substance: PIPERACILLIN SODIUM\TAZOBACTAM SODIUM
  20. POTASSIUM CHLORIDE. [Concomitant]
     Active Substance: POTASSIUM CHLORIDE
  21. MIDODRINE [Concomitant]
     Active Substance: MIDODRINE
  22. HYDROMORPHONE [Concomitant]
     Active Substance: HYDROMORPHONE
  23. KETAMINE [Concomitant]
     Active Substance: KETAMINE
  24. NOREPINEPHRINE. [Concomitant]
     Active Substance: NOREPINEPHRINE
  25. FENTANYL. [Concomitant]
     Active Substance: FENTANYL
  26. PROPOFOL. [Concomitant]
     Active Substance: PROPOFOL
  27. ACETAMINOPHEN. [Concomitant]
     Active Substance: ACETAMINOPHEN
  28. ALBUMIN [Concomitant]
     Active Substance: ALBUMIN HUMAN
  29. BUMETANIDE. [Concomitant]
     Active Substance: BUMETANIDE
  30. INSULIN GLARGINE [Concomitant]
     Active Substance: INSULIN GLARGINE
  31. INSULIN REGULAR HM [Concomitant]
     Active Substance: INSULIN NOS
  32. ROCURONIUM [Concomitant]
     Active Substance: ROCURONIUM BROMIDE
  33. DEXMEDETOMIDINE. [Concomitant]
     Active Substance: DEXMEDETOMIDINE
  34. VASOPRESSIN. [Concomitant]
     Active Substance: VASOPRESSIN
  35. FAMOTIDINE. [Concomitant]
     Active Substance: FAMOTIDINE
  36. VANCOMYCIN [Concomitant]
     Active Substance: VANCOMYCIN

REACTIONS (1)
  - Acute kidney injury [Not Recovered/Not Resolved]

NARRATIVE: CASE EVENT DATE: 20200514
